FAERS Safety Report 22291444 (Version 2)
Quarter: 2024Q3

REPORT INFORMATION
  Report Type: Spontaneous
  Country: US (occurrence: US)
  Receive Date: 20230506
  Receipt Date: 20240725
  Transmission Date: 20241017
  Serious: No
  Sender: JOHNSON AND JOHNSON
  Company Number: US-JNJFOC-20230461723

PATIENT
  Age: 75 Year
  Sex: Female

DRUGS (13)
  1. IMODIUM [Suspect]
     Active Substance: LOPERAMIDE HYDROCHLORIDE
     Indication: Diarrhoea
     Route: 065
  2. OFEV [Concomitant]
     Active Substance: NINTEDANIB
     Indication: Idiopathic pulmonary fibrosis
     Route: 048
     Dates: start: 20230206
  3. OFEV [Concomitant]
     Active Substance: NINTEDANIB
     Route: 048
     Dates: start: 20230206
  4. OFEV [Concomitant]
     Active Substance: NINTEDANIB
     Route: 048
  5. OFEV [Concomitant]
     Active Substance: NINTEDANIB
     Route: 048
  6. OFEV [Concomitant]
     Active Substance: NINTEDANIB
     Route: 048
  7. OFEV [Concomitant]
     Active Substance: NINTEDANIB
     Route: 048
  8. OFEV [Concomitant]
     Active Substance: NINTEDANIB
     Route: 048
  9. OFEV [Concomitant]
     Active Substance: NINTEDANIB
     Route: 048
  10. OFEV [Concomitant]
     Active Substance: NINTEDANIB
     Route: 048
  11. OFEV [Concomitant]
     Active Substance: NINTEDANIB
     Route: 048
  12. OFEV [Concomitant]
     Active Substance: NINTEDANIB
     Route: 048
  13. PEPTO-BISMOL [Concomitant]
     Active Substance: BISMUTH SUBSALICYLATE
     Indication: Product used for unknown indication
     Route: 065

REACTIONS (4)
  - Constipation [Unknown]
  - Abdominal distension [Unknown]
  - Abdominal pain upper [Unknown]
  - Pain [Unknown]
